FAERS Safety Report 7287274-7 (Version None)
Quarter: 2011Q1

REPORT INFORMATION
  Report Type: 
  Country: None (occurrence: None)
  Receive Date: 20110125
  Receipt Date: 20110110
  Transmission Date: 20110831
  Serious: Yes (Death)
  Sender: FDA-Public Use
  Company Number: 025518

PATIENT
  Age: 80 Year
  Sex: Male

DRUGS (5)
  1. AMLODIPINE [Suspect]
  2. ALPRAZOLAM [Suspect]
  3. PAROXETINE [Suspect]
  4. LOVASTATIN [Suspect]
  5. ENALAPRIL MALEATE [Suspect]

REACTIONS (1)
  - COMPLETED SUICIDE [None]
